FAERS Safety Report 18275204 (Version 2)
Quarter: 2020Q3

REPORT INFORMATION
  Report Type: Report from Study
  Country: FR (occurrence: FR)
  Receive Date: 20200916
  Receipt Date: 20200929
  Transmission Date: 20201103
  Serious: Yes (Life-Threatening, Hospitalization)
  Sender: FDA-Public Use
  Company Number: FR-JNJFOC-A-CH2019-185948

PATIENT
  Age: 35 Year
  Sex: Female
  Weight: 106 kg

DRUGS (13)
  1. COUMADIN [Concomitant]
     Active Substance: WARFARIN SODIUM
     Dosage: UNK
     Dates: start: 20160923
  2. OXYGEN. [Concomitant]
     Active Substance: OXYGEN
     Dosage: 4 L, PER MIN
     Route: 055
  3. OXYGEN. [Concomitant]
     Active Substance: OXYGEN
     Dosage: 8 L, PER MIN
     Route: 055
  4. DIFFU K [Concomitant]
     Active Substance: POTASSIUM CHLORIDE
     Dosage: UNK
     Dates: start: 201712
  5. TADALAFIL. [Concomitant]
     Active Substance: TADALAFIL
     Dosage: UNK
     Dates: start: 20160922
  6. LASILIX [Concomitant]
     Active Substance: FUROSEMIDE
     Dosage: UNK
     Dates: start: 201609
  7. LANZOPRAZOL [Concomitant]
     Active Substance: LANSOPRAZOLE
     Dosage: UNK
     Dates: start: 20180108
  8. LYRICA [Concomitant]
     Active Substance: PREGABALIN
     Dosage: UNK
     Dates: start: 20171228
  9. CONTRAMAL [Concomitant]
     Active Substance: TRAMADOL HYDROCHLORIDE
     Dosage: UNK
     Dates: start: 201702
  10. OXYGEN. [Concomitant]
     Active Substance: OXYGEN
     Dosage: 50 L, PER MIN
     Route: 055
  11. MACITENTAN [Suspect]
     Active Substance: MACITENTAN
     Indication: PULMONARY ARTERIAL HYPERTENSION
     Dosage: 10 MG, QD
     Route: 048
     Dates: start: 20161021
  12. EPOPROSTENOL SODIUM. [Suspect]
     Active Substance: EPOPROSTENOL SODIUM
     Route: 042
     Dates: start: 20170420
  13. OXYGEN. [Concomitant]
     Active Substance: OXYGEN
     Dosage: 2 L, PER MIN
     Route: 055

REACTIONS (9)
  - Microcytic anaemia [Unknown]
  - Corynebacterium bacteraemia [Recovered/Resolved]
  - Metabolic alkalosis [Unknown]
  - QRS axis abnormal [Unknown]
  - Device issue [Unknown]
  - Bundle branch block right [Unknown]
  - Catheter management [Unknown]
  - Pneumonia bacterial [Recovered/Resolved with Sequelae]
  - Device related infection [Recovered/Resolved]

NARRATIVE: CASE EVENT DATE: 20171228
